FAERS Safety Report 6202315-3 (Version None)
Quarter: 2009Q2

REPORT INFORMATION
  Report Type: 
  Country: None (occurrence: None)
  Receive Date: 20090520
  Receipt Date: 20090508
  Transmission Date: 20091009
  Serious: Yes (Hospitalization)
  Sender: FDA-Public Use
  Company Number: JPI-P-007109

PATIENT
  Age: 41 Year
  Sex: Female

DRUGS (1)
  1. XYREM [Suspect]
     Indication: FIBROMYALGIA
     Dosage: 6 GM (3 GM, 2 IN 1 D) ORAL
     Route: 048
     Dates: start: 20090325

REACTIONS (3)
  - BACK DISORDER [None]
  - GASTRIC DISORDER [None]
  - PYREXIA [None]
